FAERS Safety Report 15461144 (Version 4)
Quarter: 2019Q3

REPORT INFORMATION
  Report Type: Report from Study
  Country: JP (occurrence: JP)
  Receive Date: 20181003
  Receipt Date: 20190719
  Transmission Date: 20191004
  Serious: Yes (Hospitalization, Other)
  Sender: FDA-Public Use
  Company Number: JP-BRISTOL-MYERS SQUIBB COMPANY-BMS-2018-090742

PATIENT
  Age: 69 Year
  Sex: Female
  Weight: 43 kg

DRUGS (20)
  1. BARACLUDE [Concomitant]
     Active Substance: ENTECAVIR
     Indication: HEPATIC CIRRHOSIS
     Dosage: 0.5 MG, EVERYDAY
     Route: 048
     Dates: start: 20130410
  2. MAGNESIUM OXIDE. [Concomitant]
     Active Substance: MAGNESIUM OXIDE
     Indication: CONSTIPATION
     Dosage: 250 MILLIGRAM, BID
     Route: 048
     Dates: start: 20170624
  3. AZULENE [Concomitant]
     Active Substance: AZULENE
     Indication: ORAL PAIN
     Dosage: 1 DOSAGE FORM
     Route: 061
     Dates: start: 20181024
  4. LOCOID [Concomitant]
     Active Substance: HYDROCORTISONE BUTYRATE
     Indication: SKIN DISORDER
     Dosage: 1 DOSAGE FORM
     Route: 061
     Dates: start: 20181017
  5. SODIUM RABEPRAZOLE [Concomitant]
     Active Substance: RABEPRAZOLE SODIUM
     Indication: NAUSEA
     Dosage: 1 DOSAGE FORM
     Route: 048
     Dates: start: 20190109
  6. HEPARINOID [Concomitant]
     Active Substance: CHONDROITIN SULFATE (BOVINE)
     Indication: SKIN DISORDER
     Dosage: 1 DOSAGE FORM
     Route: 061
     Dates: start: 20181017
  7. THYRADIN S [Concomitant]
     Active Substance: LEVOTHYROXINE SODIUM
     Indication: BLOOD THYROID STIMULATING HORMONE ABNORMAL
     Dosage: 1 DOSAGE FORM, QD
     Route: 048
     Dates: start: 20190212
  8. PIARLE [Concomitant]
     Active Substance: LACTULOSE
     Indication: ENCEPHALOPATHY
     Dosage: 15 MILLILITER, Q8H
     Route: 048
     Dates: start: 20180927
  9. LENVATINIB [Suspect]
     Active Substance: LENVATINIB
     Indication: HEPATOCELLULAR CARCINOMA
     Dosage: 8 MILLIGRAM, QD
     Route: 048
     Dates: start: 20180919
  10. DEXALTIN [Concomitant]
     Active Substance: DEXAMETHASONE
     Indication: ORAL PAIN
     Dosage: 1 DOSAGE FORM
     Route: 061
     Dates: start: 20181024
  11. NIVOLUMAB [Suspect]
     Active Substance: NIVOLUMAB
     Indication: HEPATOCELLULAR CARCINOMA
     Dosage: 240 MILLIGRAM
     Route: 041
     Dates: start: 20180919
  12. SENNA [Concomitant]
     Active Substance: SENNA LEAF\SENNOSIDES\SENNOSIDES A AND B
     Indication: CONSTIPATION
     Dosage: 1 DOSAGE FORM, QD
     Route: 048
     Dates: start: 20180502
  13. AMLODIPINE [Concomitant]
     Active Substance: AMLODIPINE BESYLATE
     Indication: HYPERTENSION
     Dosage: 1 DOSAGE FORM
     Route: 048
     Dates: start: 20180929
  14. PL [Concomitant]
     Active Substance: ACETAMINOPHEN\CAFFEINE\PROMETHAZINE\SALICYLAMIDE
     Indication: RHINORRHOEA
     Dosage: 1 DOSAGE FORM
     Route: 048
     Dates: start: 20181004
  15. DIACORT [Concomitant]
     Active Substance: DIFLORASONE DIACETATE
     Indication: SKIN DISORDER
     Dosage: 1 DOSAGE FORM
     Route: 061
     Dates: start: 20181012
  16. VENAPASTA [Concomitant]
     Indication: SKIN DISORDER
     Dosage: 1 DOSAGE FORM
     Route: 061
     Dates: start: 20190206
  17. CALONAL [Concomitant]
     Active Substance: ACETAMINOPHEN
     Indication: HEADACHE
     Dosage: 2 DOSAGE FORM
     Route: 048
     Dates: start: 20181106
  18. SPIRONOLACTONE. [Concomitant]
     Active Substance: SPIRONOLACTONE
     Indication: PROPHYLAXIS
     Dosage: 1 DOSAGE FORM, QD
     Route: 048
     Dates: start: 20190213
  19. BROTIZOLAM [Concomitant]
     Active Substance: BROTIZOLAM
     Indication: INSOMNIA
     Dosage: 1 DOSAGE FORM, QD
     Route: 048
     Dates: start: 20190216
  20. PREDNISOLONE. [Concomitant]
     Active Substance: PREDNISOLONE
     Indication: DECREASED APPETITE
     Dosage: 2 DOSAGE FORM, QD
     Route: 048
     Dates: start: 20190215

REACTIONS (4)
  - Depressed level of consciousness [Recovered/Resolved]
  - Oedema [Recovered/Resolved]
  - Portal vein thrombosis [Recovering/Resolving]
  - Hyperammonaemia [Recovered/Resolved]

NARRATIVE: CASE EVENT DATE: 20180925
